FAERS Safety Report 23283226 (Version 3)
Quarter: 2024Q1

REPORT INFORMATION
  Report Type: Spontaneous
  Country: ES (occurrence: ES)
  Receive Date: 20231211
  Receipt Date: 20240110
  Transmission Date: 20240410
  Serious: Yes (Death, Hospitalization, Other)
  Sender: FDA-Public Use
  Company Number: ES-JNJFOC-20231140710

PATIENT
  Age: 68 Year
  Sex: Male

DRUGS (7)
  1. PREDNISONE [Suspect]
     Active Substance: PREDNISONE
     Indication: Hormone-dependent prostate cancer
     Dosage: UNK
     Route: 065
     Dates: start: 201802
  2. PREDNISONE [Suspect]
     Active Substance: PREDNISONE
     Indication: Prostate cancer
  3. LANREOTIDE ACETATE [Suspect]
     Active Substance: LANREOTIDE ACETATE
     Indication: Neuroendocrine carcinoma
     Dosage: 120 MILLIGRAM, Q28D
     Route: 065
  4. ZYTIGA [Suspect]
     Active Substance: ABIRATERONE ACETATE
     Indication: Hormone-dependent prostate cancer
     Dosage: 1000 MILLIGRAM
     Route: 048
     Dates: start: 201802
  5. ZYTIGA [Suspect]
     Active Substance: ABIRATERONE ACETATE
     Indication: Prostate cancer
  6. PACLITAXEL [Concomitant]
     Active Substance: PACLITAXEL
     Indication: Necrotising colitis
     Dosage: UNK
     Route: 065
  7. CARBOPLATIN [Concomitant]
     Active Substance: CARBOPLATIN
     Indication: Necrotising colitis
     Dosage: UNK
     Route: 065

REACTIONS (6)
  - Septic shock [Fatal]
  - Pulmonary sepsis [Fatal]
  - Metabolic alkalosis [Unknown]
  - Hypokalaemia [Unknown]
  - Hyperkalaemia [Unknown]
  - Off label use [Unknown]
